FAERS Safety Report 22143087 (Version 1)
Quarter: 2023Q1

REPORT INFORMATION
  Report Type: Report from Study
  Country: DE (occurrence: DE)
  Receive Date: 20230327
  Receipt Date: 20230327
  Transmission Date: 20230418
  Serious: Yes (Hospitalization)
  Sender: FDA-Public Use
  Company Number: DE-002147023-NVSC2020DE002344

PATIENT
  Sex: Female
  Weight: 65 kg

DRUGS (4)
  1. LETROZOLE [Suspect]
     Active Substance: LETROZOLE
     Indication: Breast cancer metastatic
     Dosage: 2.5 MILLIGRAM, QD
     Route: 048
     Dates: start: 20191030, end: 20210317
  2. GONADORELIN [Suspect]
     Active Substance: GONADORELIN
     Indication: Breast cancer
     Dosage: 500 MILLIGRAM, Q2W
     Route: 058
     Dates: start: 20220704
  3. KISQALI [Suspect]
     Active Substance: RIBOCICLIB
     Indication: Breast cancer metastatic
     Dosage: 600 MG,QD (REGIMEN 21 DAYS INTAKE, 7 DAYS PAUSE)
     Route: 048
     Dates: start: 20191115, end: 20210317
  4. ESTRIOL [Concomitant]
     Active Substance: ESTRIOL
     Indication: Product used for unknown indication
     Dosage: Q2W (BIW (1X BY NIGHT 2X WEEKLY)
     Route: 065
     Dates: start: 20201001

REACTIONS (14)
  - COVID-19 [Recovered/Resolved]
  - Anaemia [Not Recovered/Not Resolved]
  - Chills [Not Recovered/Not Resolved]
  - Iron deficiency [Not Recovered/Not Resolved]
  - Onychoclasis [Not Recovered/Not Resolved]
  - Flank pain [Not Recovered/Not Resolved]
  - Full blood count decreased [Not Recovered/Not Resolved]
  - Alopecia [Not Recovered/Not Resolved]
  - Pruritus [Not Recovered/Not Resolved]
  - Weight decreased [Recovered/Resolved]
  - Decreased appetite [Not Recovered/Not Resolved]
  - Dyspnoea [Not Recovered/Not Resolved]
  - Nausea [Not Recovered/Not Resolved]
  - Arthralgia [Not Recovered/Not Resolved]

NARRATIVE: CASE EVENT DATE: 20200106
